FAERS Safety Report 6581373-0 (Version None)
Quarter: 2010Q1

REPORT INFORMATION
  Report Type: 
  Country: None (occurrence: None)
  Receive Date: 20100203
  Receipt Date: 20100122
  Transmission Date: 20100710
  Serious: Yes (Hospitalization)
  Sender: FDA-Public Use
  Company Number: AE-2009-334

PATIENT
  Age: 50 Year

DRUGS (4)
  1. METOCLOPRAMIDE HYDROCHLORIDE [Suspect]
     Indication: NAUSEA
     Dosage: 10 MG, *EVERY 8 HOURS
  2. METOCLOPRAMIDE HYDROCHLORIDE [Suspect]
     Indication: VOMITING
     Dosage: 10 MG, *EVERY 8 HOURS
  3. LINEZOLID [Suspect]
  4. TRYPTOPHAN [Suspect]
     Dosage: PARENTERAL
     Route: 051

REACTIONS (2)
  - DRUG INTERACTION [None]
  - SEROTONIN SYNDROME [None]
